FAERS Safety Report 17289947 (Version 1)
Quarter: 2020Q1

REPORT INFORMATION
  Report Type: Spontaneous
  Country: US (occurrence: US)
  Receive Date: 20200120
  Receipt Date: 20200120
  Transmission Date: 20200409
  Serious: No
  Sender: FDA-Public Use
  Company Number: US-INCYTE CORPORATION-2020IN000324

PATIENT

DRUGS (1)
  1. JAKAFI [Suspect]
     Active Substance: RUXOLITINIB
     Indication: MYELOPROLIFERATIVE NEOPLASM
     Dosage: 20 MILLIGRAM, BID
     Route: 048
     Dates: start: 20191224

REACTIONS (4)
  - Off label use [Unknown]
  - Rash [Not Recovered/Not Resolved]
  - Gastrointestinal motility disorder [Not Recovered/Not Resolved]
  - Mechanical urticaria [Not Recovered/Not Resolved]

NARRATIVE: CASE EVENT DATE: 20191224
